FAERS Safety Report 11106327 (Version 1)
Quarter: 2015Q2

REPORT INFORMATION
  Report Type: Spontaneous
  Country: US (occurrence: None)
  Receive Date: 20150508
  Receipt Date: 20150508
  Transmission Date: 20150821
  Serious: Yes (Hospitalization, Other)
  Sender: FDA-Public Use
  Company Number: DEP_02715_2015

PATIENT
  Age: 56 Year
  Sex: Female
  Weight: 130.64 kg

DRUGS (9)
  1. OXYCONTIN [Suspect]
     Active Substance: OXYCODONE HYDROCHLORIDE
     Indication: RESTLESS LEGS SYNDROME
     Dosage: 30 MG, AT NIGHT
     Route: 048
     Dates: start: 201411
  2. LISINOPRIL. [Concomitant]
     Active Substance: LISINOPRIL
  3. ATORVASTATIN [Concomitant]
     Active Substance: ATORVASTATIN
  4. VITAMIN B [Concomitant]
     Active Substance: VITAMIN B
  5. GRALISE [Suspect]
     Active Substance: GABAPENTIN
     Indication: RESTLESS LEGS SYNDROME
     Route: 048
     Dates: start: 20150407, end: 20150407
  6. OXYCODONE [Suspect]
     Active Substance: OXYCODONE
     Indication: RESTLESS LEGS SYNDROME
     Route: 048
     Dates: start: 1992
  7. KLONOPIN [Concomitant]
     Active Substance: CLONAZEPAM
  8. METFORMIN [Concomitant]
     Active Substance: METFORMIN HYDROCHLORIDE
  9. GRALISE [Suspect]
     Active Substance: GABAPENTIN
     Indication: OFF LABEL USE
     Route: 048
     Dates: start: 20150407, end: 20150407

REACTIONS (18)
  - Malaise [None]
  - Muscular weakness [None]
  - Gait disturbance [None]
  - Hyperhidrosis [None]
  - Contusion [None]
  - Confusional state [None]
  - Fall [None]
  - Restlessness [None]
  - Condition aggravated [None]
  - Restless legs syndrome [None]
  - Memory impairment [None]
  - Feeling abnormal [None]
  - Overdose [None]
  - Aggression [None]
  - Pneumonia [None]
  - Somnolence [None]
  - Psychotic disorder [None]
  - Urinary retention [None]

NARRATIVE: CASE EVENT DATE: 201504
